FAERS Safety Report 5000397-8 (Version None)
Quarter: 2006Q2

REPORT INFORMATION
  Report Type: 
  Country: None (occurrence: None)
  Receive Date: 20060511
  Receipt Date: 20051214
  Transmission Date: 20061013
  Serious: Yes (Hospitalization)
  Sender: FDA-Public Use
  Company Number: US-MERCK-0512USA02350

PATIENT
  Age: 56 Year
  Sex: Male
  Weight: 114 kg

DRUGS (9)
  1. TYLENOL (CAPLET) [Concomitant]
     Route: 065
     Dates: end: 20050901
  2. BEXTRA [Concomitant]
     Route: 065
     Dates: start: 20021101
  3. VIOXX [Suspect]
     Indication: OSTEOARTHRITIS
     Route: 048
     Dates: start: 20010801, end: 20040901
  4. ASPIRIN [Concomitant]
     Route: 065
     Dates: start: 20000101
  5. IBUPROFEN [Concomitant]
     Route: 065
     Dates: start: 20000101
  6. ACETAMINOPHEN AND PROPOXYPHENE HYDROCHLORIDE [Concomitant]
     Route: 065
     Dates: start: 20000901, end: 20021201
  7. HYDROCODONE BITARTRATE [Concomitant]
     Route: 065
     Dates: start: 20021119, end: 20031201
  8. OXYCODONE [Concomitant]
     Route: 065
     Dates: start: 20020404
  9. LISINOPRIL [Concomitant]
     Route: 065
     Dates: start: 20020905

REACTIONS (7)
  - ACUTE MYOCARDIAL INFARCTION [None]
  - ARTHROPATHY [None]
  - CORONARY ARTERY DISEASE [None]
  - DEPRESSION [None]
  - GASTROINTESTINAL DISORDER [None]
  - HYPERTRIGLYCERIDAEMIA [None]
  - SLEEP APNOEA SYNDROME [None]
